FAERS Safety Report 16444906 (Version 6)
Quarter: 2020Q3

REPORT INFORMATION
  Report Type: Spontaneous
  Country: US (occurrence: US)
  Receive Date: 20190618
  Receipt Date: 20200901
  Transmission Date: 20201102
  Serious: Yes (Hospitalization, Other)
  Sender: FDA-Public Use
  Company Number: US-PFIZER INC-2019258954

PATIENT
  Sex: Female

DRUGS (7)
  1. EXCEDRIN MIGRAINE [Concomitant]
     Active Substance: ACETAMINOPHEN\ASPIRIN\CAFFEINE
     Indication: SNEEZING
  2. PREMARIN [Suspect]
     Active Substance: ESTROGENS, CONJUGATED
     Dosage: 0.9 MG, 1X/DAY
     Dates: start: 1990
  3. EXCEDRIN MIGRAINE [Concomitant]
     Active Substance: ACETAMINOPHEN\ASPIRIN\CAFFEINE
     Indication: HEADACHE
     Dosage: 4 DF
     Dates: start: 1986
  4. EXCEDRIN MIGRAINE [Concomitant]
     Active Substance: ACETAMINOPHEN\ASPIRIN\CAFFEINE
     Indication: PARANASAL SINUS DISCOMFORT
  5. PENICILLIN [BENZYLPENICILLIN SODIUM] [Concomitant]
     Active Substance: PENICILLIN G SODIUM
     Indication: DENTAL CARIES
     Dosage: UNK
     Dates: start: 202002
  6. LEVOTHYROXINE. [Concomitant]
     Active Substance: LEVOTHYROXINE
     Indication: AUTOIMMUNE THYROIDITIS
     Dosage: 88 UG, 1X/DAY
     Dates: start: 2014
  7. PRILOSEC [Concomitant]
     Active Substance: OMEPRAZOLE MAGNESIUM
     Indication: DYSPEPSIA
     Dosage: UNK, AS NEEDED (ONLY AS NEEDED 14DAYS)
     Dates: start: 2014

REACTIONS (6)
  - Accident [Unknown]
  - Nephrolithiasis [Recovered/Resolved]
  - Diverticulitis [Not Recovered/Not Resolved]
  - Injury [Unknown]
  - Arthritis [Not Recovered/Not Resolved]
  - Gallbladder disorder [Recovered/Resolved]

NARRATIVE: CASE EVENT DATE: 2014
